FAERS Safety Report 8107227-6 (Version None)
Quarter: 2012Q1

REPORT INFORMATION
  Report Type: 
  Country: None (occurrence: None)
  Receive Date: 20120202
  Receipt Date: 20120120
  Transmission Date: 20120608
  Serious: Yes (Hospitalization, Other)
  Sender: FDA-Public Use
  Company Number: US-ELI_LILLY_AND_COMPANY-US201108000437

PATIENT
  Sex: Female
  Weight: 47.17 kg

DRUGS (10)
  1. CRANBERRY [Concomitant]
     Dosage: 12000 MG, BID
  2. FORTEO [Suspect]
     Indication: OSTEOPOROSIS
     Dosage: 20 UG, QD
     Route: 065
  3. VITAMIN TAB [Concomitant]
  4. CITRACAL + D [Concomitant]
     Dosage: UNK, BID
  5. ASPIRIN [Concomitant]
     Dosage: 8 MG, QD
  6. FORTEO [Suspect]
     Dosage: 20 UG, QD
     Route: 065
  7. RANEXA [Concomitant]
  8. ATENOLOL [Concomitant]
     Dosage: 50 MG, UNK
  9. VITAMIN B-12 [Concomitant]
     Dosage: UNK UNK, MONTHLY (1/M)
  10. RITALIN [Concomitant]
     Dosage: 10 MG, BID

REACTIONS (4)
  - URINARY TRACT INFECTION [None]
  - HIP FRACTURE [None]
  - ANAEMIA [None]
  - FALL [None]
